FAERS Safety Report 4865322-9 (Version None)
Quarter: 2005Q4

REPORT INFORMATION
  Report Type: 
  Country: None (occurrence: None)
  Receive Date: 20051223
  Receipt Date: 20051128
  Transmission Date: 20060501
  Serious: Yes (Hospitalization)
  Sender: FDA-Public Use
  Company Number: 2005AP06240

PATIENT
  Age: 25354 Day
  Sex: Male
  Weight: 62 kg

DRUGS (19)
  1. DIPRIVAN [Suspect]
     Indication: SEDATION
     Route: 042
     Dates: start: 20051118
  2. DIPRIVAN [Suspect]
     Route: 042
     Dates: start: 20051118
  3. DIPRIVAN [Suspect]
     Route: 042
     Dates: start: 20051118
  4. DIPRIVAN [Suspect]
     Route: 042
     Dates: start: 20051118
  5. DIPRIVAN [Suspect]
     Route: 042
     Dates: start: 20051118
  6. DIPRIVAN [Suspect]
     Route: 042
     Dates: start: 20051119
  7. DIPRIVAN [Suspect]
     Route: 042
     Dates: start: 20051119
  8. DIPRIVAN [Suspect]
     Route: 042
     Dates: start: 20051119
  9. DIPRIVAN [Suspect]
     Route: 042
     Dates: start: 20051119
  10. DIPRIVAN [Suspect]
     Route: 042
     Dates: start: 20051121, end: 20051127
  11. AMINOFLUID [Concomitant]
     Route: 041
     Dates: start: 20051111, end: 20051209
  12. ROCEPHIN [Concomitant]
     Route: 041
     Dates: start: 20051111, end: 20051122
  13. SOLU-MEDROL [Concomitant]
     Route: 042
     Dates: start: 20051117, end: 20051119
  14. INTRALIPID 10% [Concomitant]
     Route: 041
     Dates: start: 20051118, end: 20051125
  15. GASTER [Concomitant]
     Route: 041
     Dates: start: 20051119, end: 20051125
  16. VITAMEDIN [Concomitant]
     Route: 041
     Dates: start: 20051119
  17. LASIX [Concomitant]
     Route: 041
     Dates: start: 20051119, end: 20051127
  18. DOBUTREX [Concomitant]
     Route: 041
     Dates: start: 20051119, end: 20051211
  19. PREDONINE [Concomitant]
     Route: 041
     Dates: start: 20051120, end: 20051122

REACTIONS (5)
  - BLOOD PRESSURE DECREASED [None]
  - DEPRESSED LEVEL OF CONSCIOUSNESS [None]
  - ORAL INTAKE REDUCED [None]
  - SEPTIC SHOCK [None]
  - THERAPY NON-RESPONDER [None]
